FAERS Safety Report 25400351 (Version 3)
Quarter: 2025Q4

REPORT INFORMATION
  Report Type: Spontaneous
  Country: US (occurrence: US)
  Receive Date: 20250605
  Receipt Date: 20251202
  Transmission Date: 20260118
  Serious: No
  Sender: SPRINGWORKS THERAPEUTIC
  Company Number: US-SPRINGWORKS THERAPEUTICS-SW-002686

PATIENT
  Sex: Female

DRUGS (1)
  1. GOMEKLI [Suspect]
     Active Substance: MIRDAMETINIB
     Indication: Product used for unknown indication
     Dosage: UNK

REACTIONS (15)
  - Onychomadesis [Recovered/Resolved]
  - Skin fissures [Not Recovered/Not Resolved]
  - Skin haemorrhage [Not Recovered/Not Resolved]
  - Food craving [Unknown]
  - Cyst [Unknown]
  - Nausea [Unknown]
  - Alopecia [Unknown]
  - Hair colour changes [Unknown]
  - Dry skin [Not Recovered/Not Resolved]
  - Fatigue [Unknown]
  - Constipation [Unknown]
  - Diarrhoea [Unknown]
  - Vomiting [Unknown]
  - Therapeutic product effect decreased [Unknown]
  - Therapeutic response delayed [Unknown]
